FAERS Safety Report 13645362 (Version 1)
Quarter: 2017Q2

REPORT INFORMATION
  Report Type: Spontaneous
  Country: CA (occurrence: CA)
  Receive Date: 20170612
  Receipt Date: 20170612
  Transmission Date: 20170830
  Serious: Yes (Hospitalization)
  Sender: FDA-Public Use
  Company Number: US-ASTRAZENECA-2016SE55915

PATIENT
  Age: 12 Year
  Sex: Male

DRUGS (6)
  1. IMURAN [Concomitant]
     Active Substance: AZATHIOPRINE
  2. SALBUTAMOL [Concomitant]
     Active Substance: ALBUTEROL
     Dosage: UNK
     Route: 055
  3. ALVESCO [Suspect]
     Active Substance: CICLESONIDE
     Indication: ASTHMA
     Route: 055
  4. REMICADE [Concomitant]
     Active Substance: INFLIXIMAB
     Dosage: 360.0MG UNKNOWN
     Route: 042
  5. IMURAN [Concomitant]
     Active Substance: AZATHIOPRINE
  6. IRON [Concomitant]
     Active Substance: IRON
     Route: 048

REACTIONS (2)
  - Abdominal pain upper [Recovered/Resolved with Sequelae]
  - Colitis ulcerative [Recovered/Resolved with Sequelae]

NARRATIVE: CASE EVENT DATE: 2006
